FAERS Safety Report 12244896 (Version 1)
Quarter: 2016Q2

REPORT INFORMATION
  Report Type: Report from Study
  Country: CH (occurrence: CH)
  Receive Date: 20160407
  Receipt Date: 20160407
  Transmission Date: 20160815
  Serious: Yes (Other)
  Sender: FDA-Public Use
  Company Number: CH-ROCHE-591296

PATIENT

DRUGS (3)
  1. CAPECITABINE. [Suspect]
     Active Substance: CAPECITABINE
     Indication: COLORECTAL CANCER METASTATIC
     Dosage: DOSES: 800/1000/1200/1400 AND 1600 M/SQ.M DAILY IN TWO DIVIDED DOSES, TAKEN ON DAYS 1-29 EVERY 5 WK.
     Route: 048
  2. OXALIPLATIN. [Suspect]
     Active Substance: OXALIPLATIN
     Indication: COLORECTAL CANCER METASTATIC
     Dosage: DOSAGE REPORTED: 70 M/SQ.M., TAKEN ON DAYS 1 AND 15
     Route: 042
  3. IRINOTECAN [Suspect]
     Active Substance: IRINOTECAN
     Indication: COLORECTAL CANCER METASTATIC
     Dosage: DOSAGE REPORTED: 100 M/SQ.M., TAKEN ON DAYS 8 AND 22
     Route: 042

REACTIONS (8)
  - Cough [Unknown]
  - Dyspnoea [Unknown]
  - White blood cell count abnormal [Unknown]
  - Blood alkaline phosphatase [Unknown]
  - Diarrhoea [Unknown]
  - Fatigue [Unknown]
  - Neutrophil count [Unknown]
  - Colorectal cancer [Unknown]
